FAERS Safety Report 9097723 (Version 6)
Quarter: 2014Q3

REPORT INFORMATION
  Report Type: Report from Study
  Country: FR (occurrence: FR)
  Receive Date: 20130212
  Receipt Date: 20140924
  Transmission Date: 20150326
  Serious: Yes (Hospitalization)
  Sender: FDA-Public Use
  Company Number: FR-ROCHE-1190312

PATIENT
  Age: 67 Year
  Sex: Female
  Weight: 65 kg

DRUGS (7)
  1. ASPEGIC (FRANCE) [Concomitant]
     Dosage: DAILY
     Route: 065
     Dates: start: 20121207
  2. TRASTUZUMAB [Concomitant]
     Active Substance: TRASTUZUMAB
     Route: 065
     Dates: start: 20140418, end: 20140518
  3. TRASTUZUMAB [Suspect]
     Active Substance: TRASTUZUMAB
     Indication: HER-2 POSITIVE BREAST CANCER
     Dosage: DATE OF LAST DOSE OF TRASTUZUMAB PRIOR TO AE 18/JAN/2013
     Route: 058
     Dates: start: 20121228
  4. AVIBON [Concomitant]
     Route: 065
     Dates: start: 20121207
  5. DOCETAXEL [Concomitant]
     Active Substance: DOCETAXEL
     Route: 065
     Dates: start: 20121228
  6. BICARBONATE [Concomitant]
     Active Substance: BICARBONATE ION
     Route: 065
     Dates: start: 20121207
  7. LEXOMIL [Concomitant]
     Active Substance: BROMAZEPAM
     Route: 065
     Dates: start: 201209

REACTIONS (1)
  - Chest pain [Recovered/Resolved]

NARRATIVE: CASE EVENT DATE: 20130201
